FAERS Safety Report 16548542 (Version 3)
Quarter: 2020Q1

REPORT INFORMATION
  Report Type: Report from Study
  Country: GB (occurrence: GB)
  Receive Date: 20190709
  Receipt Date: 20200221
  Transmission Date: 20200409
  Serious: Yes (Hospitalization)
  Sender: FDA-Public Use
  Company Number: GB-MYLANLABS-2019M1064038

PATIENT
  Age: 64 Year
  Sex: Female

DRUGS (23)
  1. LANSOPRAZOLE. [Concomitant]
     Active Substance: LANSOPRAZOLE
     Dosage: 30 MILLIGRAM, PRN
     Route: 048
  2. ALENDRONIC ACID [Concomitant]
     Active Substance: ALENDRONIC ACID
     Indication: PROPHYLAXIS
     Dosage: 70 MILLIGRAM, QW
     Route: 048
  3. CYCLIZINE [Concomitant]
     Active Substance: CYCLIZINE
     Indication: NAUSEA
     Dosage: 50 MILLIGRAM, PRN
     Route: 048
  4. TRASTUZUMAB. [Suspect]
     Active Substance: TRASTUZUMAB
     Dosage: 504 MILLIGRAM, Q3W
     Route: 042
     Dates: start: 20180209
  5. EXEMESTANE. [Suspect]
     Active Substance: EXEMESTANE
     Indication: BREAST CANCER METASTATIC
     Dosage: 25 MILLIGRAM, QD
     Route: 042
     Dates: start: 20180209
  6. DENOSUMAB [Concomitant]
     Active Substance: DENOSUMAB
     Dosage: 120 MILLIGRAM, MONTHLY
     Route: 058
     Dates: start: 20180706
  7. TRASTUZUMAB. [Suspect]
     Active Substance: TRASTUZUMAB
     Dosage: 483 MILLIGRAM, Q3W
     Route: 042
     Dates: start: 20170915, end: 20180209
  8. DOCETAXEL. [Suspect]
     Active Substance: DOCETAXEL
     Indication: BREAST CANCER METASTATIC
     Dosage: 108 MILLIGRAM, Q3W, NUMBER OF CYCLED PER REGIMEN WAS 6
     Route: 042
     Dates: start: 20170825, end: 20170915
  9. PIRITON [Concomitant]
     Active Substance: CHLORPHENIRAMINE MALEATE
     Indication: RASH
     Dosage: 4 MILLIGRAM, PRN
     Route: 048
     Dates: start: 20180504
  10. MENTHOL. [Concomitant]
     Active Substance: MENTHOL
     Indication: RASH PRURITIC
     Dosage: UNK, PRN
     Route: 061
     Dates: start: 20180810
  11. E45 [Concomitant]
     Active Substance: LANOLIN\LIGHT MINERAL OIL\PARAFFIN
     Indication: RASH PRURITIC
     Dosage: UNK, PRN
     Route: 061
     Dates: start: 20180810
  12. AMLODIPINE [Concomitant]
     Active Substance: AMLODIPINE BESYLATE
     Indication: HYPERTENSION
     Dosage: 5 MILLIGRAM, QD
     Route: 048
  13. IBUPROFEN. [Concomitant]
     Active Substance: IBUPROFEN
     Indication: PAIN
     Dosage: 400 MILLIGRAM, PRN
     Dates: start: 20190718
  14. TRASTUZUMAB. [Suspect]
     Active Substance: TRASTUZUMAB
     Indication: BREAST CANCER METASTATIC
     Dosage: 630 MILLIGRAM, Q3W
     Route: 042
     Dates: start: 20170825, end: 20170825
  15. DOCETAXEL. [Suspect]
     Active Substance: DOCETAXEL
     Dosage: 96 MILLIGRAM, Q3W, NUMBER OF CYCLED PER REGIMEN WAS 6
     Route: 042
     Dates: start: 20170915, end: 20171208
  16. ADCAL D3 [Concomitant]
     Active Substance: CALCIUM CARBONATE\CHOLECALCIFEROL
     Dosage: I TABLET
     Route: 048
     Dates: start: 20170825
  17. LOSARTAN. [Concomitant]
     Active Substance: LOSARTAN
     Indication: HYPERTENSION
     Dosage: 50 MILLIGRAM PER CUBIC METRE, QD
     Route: 048
  18. PERTUZUMAB. [Suspect]
     Active Substance: PERTUZUMAB
     Indication: BREAST CANCER METASTATIC
     Dosage: 840 MILLIGRAM, Q3W
     Route: 042
     Dates: start: 20170824, end: 20170824
  19. ANUSOL                             /08601001/ [Concomitant]
     Indication: HAEMORRHOIDS
     Dosage: UNK, PRN
     Route: 061
     Dates: start: 20180504
  20. PERTUZUMAB. [Suspect]
     Active Substance: PERTUZUMAB
     Dosage: 420 MILLIGRAM, Q3W
     Route: 042
     Dates: start: 20170915
  21. SALBUTAMOL [Concomitant]
     Active Substance: ALBUTEROL
     Dosage: 2 PUFF, PRN
     Route: 055
  22. SERTRALINE [Concomitant]
     Active Substance: SERTRALINE HYDROCHLORIDE
     Indication: DEPRESSION
     Dosage: 100 MILLIGRAM, QD
     Route: 048
  23. FERROUS SULFATE. [Concomitant]
     Active Substance: FERROUS SULFATE
     Indication: ANAEMIA
     Dosage: 200 MILLIGRAM, QD
     Route: 048

REACTIONS (2)
  - Pleuritic pain [Recovered/Resolved]
  - Sepsis [Recovered/Resolved]

NARRATIVE: CASE EVENT DATE: 20190117
